FAERS Safety Report 17798414 (Version 3)
Quarter: 2020Q3

REPORT INFORMATION
  Report Type: Spontaneous
  Country: JP (occurrence: JP)
  Receive Date: 20200518
  Receipt Date: 20200921
  Transmission Date: 20201102
  Serious: Yes (Hospitalization)
  Sender: FDA-Public Use
  Company Number: JP-JNJFOC-20200510894

PATIENT
  Age: 41 Year
  Sex: Female

DRUGS (9)
  1. SILECE [Concomitant]
     Active Substance: FLUNITRAZEPAM
     Dosage: AT BEDTIME
     Route: 048
  2. ROHYPNOL [Concomitant]
     Active Substance: FLUNITRAZEPAM
     Dosage: DOSE UNKNOWN
     Route: 048
     Dates: start: 201609, end: 2016
  3. MYONAL [Concomitant]
     Dosage: AFTER LUNCH
     Route: 048
  4. MEILAX [Concomitant]
     Active Substance: ETHYL LOFLAZEPATE
     Dosage: AFTER BREAKFAST
     Route: 048
  5. CONCERTA [Suspect]
     Active Substance: METHYLPHENIDATE HYDROCHLORIDE
     Indication: ATTENTION DEFICIT HYPERACTIVITY DISORDER
     Route: 048
     Dates: start: 20160101, end: 2016
  6. QUETIAPINE. [Concomitant]
     Active Substance: QUETIAPINE
     Dosage: AFTER BREAKFAST
     Route: 048
     Dates: start: 201601
  7. ABILIFY [Concomitant]
     Active Substance: ARIPIPRAZOLE
     Dosage: AFTER BREAKFAST
     Route: 048
  8. STRATTERA [Concomitant]
     Active Substance: ATOMOXETINE HYDROCHLORIDE
     Dosage: AFTER BREAKFAST
     Route: 048
  9. ROHYPNOL [Concomitant]
     Active Substance: FLUNITRAZEPAM
     Dosage: DOSE UNKNOWN
     Route: 048
     Dates: end: 201609

REACTIONS (2)
  - Dystonia [Not Recovered/Not Resolved]
  - Palpitations [Not Recovered/Not Resolved]

NARRATIVE: CASE EVENT DATE: 201603
